FAERS Safety Report 4789346-5 (Version None)
Quarter: 2005Q3

REPORT INFORMATION
  Report Type: 
  Country: None (occurrence: None)
  Receive Date: 20050929
  Receipt Date: 20050811
  Transmission Date: 20060218
  Serious: No
  Sender: FDA-Public Use
  Company Number: 05P-163-0308173-00

PATIENT
  Age: 62 Year
  Sex: Female
  Weight: 136 kg

DRUGS (4)
  1. HUMIRA [Suspect]
     Indication: RHEUMATOID ARTHRITIS
     Dosage: 40 MG, 1 IN 2 WK, SUBCUTANEOUS
     Route: 058
     Dates: start: 20040901, end: 20050707
  2. PREDNISONE [Concomitant]
  3. VICODIN [Concomitant]
  4. DIOVAN [Concomitant]

REACTIONS (1)
  - CYSTITIS [None]
